FAERS Safety Report 19256306 (Version 1)
Quarter: 2021Q2

REPORT INFORMATION
  Report Type: Report from Study
  Country: US (occurrence: US)
  Receive Date: 20210513
  Receipt Date: 20210513
  Transmission Date: 20210717
  Serious: Yes (Death, Hospitalization, Other)
  Sender: FDA-Public Use
  Company Number: US-TAKEDA-US201942930

PATIENT
  Sex: Female

DRUGS (1)
  1. HUMAN NORMAL IMMUNOGLOBULIN; LIQUID [Suspect]
     Active Substance: HUMAN IMMUNOGLOBULIN G
     Indication: PRIMARY IMMUNODEFICIENCY SYNDROME
     Dosage: UNK
     Route: 042

REACTIONS (9)
  - Limb injury [Unknown]
  - Inappropriate schedule of product administration [Unknown]
  - Impaired healing [Unknown]
  - Wound sepsis [Fatal]
  - Wound infection [Unknown]
  - Obstruction [Unknown]
  - Ulcer [Recovering/Resolving]
  - Product supply issue [Unknown]
  - Fall [Unknown]
